FAERS Safety Report 6532035-7 (Version None)
Quarter: 2010Q1

REPORT INFORMATION
  Report Type: 
  Country: None (occurrence: None)
  Receive Date: 20100107
  Receipt Date: 20100107
  Transmission Date: 20100710
  Serious: Yes (Other)
  Sender: FDA-Public Use
  Company Number: None

PATIENT
  Sex: Female

DRUGS (1)
  1. ISOPTO-TEARS ALCON [Suspect]
     Dosage: 1 DROP 5X DAY OTIC
     Dates: start: 20091123, end: 20091224

REACTIONS (3)
  - BLEPHAROSPASM [None]
  - CORNEAL DISORDER [None]
  - HYPERKERATOSIS [None]
